FAERS Safety Report 6644563-4 (Version None)
Quarter: 2010Q1

REPORT INFORMATION
  Report Type: 
  Country: None (occurrence: None)
  Receive Date: 20100304
  Receipt Date: 20090212
  Transmission Date: 20100710
  Serious: Yes (Other)
  Sender: FDA-Public Use
  Company Number: 2009MB000018

PATIENT
  Age: 50 Year
  Sex: Male
  Weight: 76.2043 kg

DRUGS (1)
  1. CEPHALEXIN [Suspect]
     Indication: PROSTATE INFECTION
     Dosage: 500 MG; QID; PO
     Route: 048
     Dates: start: 20081107

REACTIONS (1)
  - ARTHRALGIA [None]
